FAERS Safety Report 6011882-4 (Version None)
Quarter: 2008Q4

REPORT INFORMATION
  Report Type: 
  Country: None (occurrence: None)
  Receive Date: 20081218
  Receipt Date: 20080926
  Transmission Date: 20090506
  Serious: No
  Sender: FDA-Public Use
  Company Number: US-ASTRAZENECA-2008UW20461

PATIENT
  Age: 70 Year
  Sex: Male

DRUGS (2)
  1. CRESTOR [Suspect]
     Indication: BLOOD CHOLESTEROL INCREASED
     Dosage: 20MG
     Route: 048
  2. CRESTOR [Suspect]
     Dosage: 10MG
     Route: 048

REACTIONS (1)
  - BREAST TENDERNESS [None]
